FAERS Safety Report 14808483 (Version 1)
Quarter: 2018Q2

REPORT INFORMATION
  Report Type: Spontaneous
  Country: AT (occurrence: AT)
  Receive Date: 20180425
  Receipt Date: 20180425
  Transmission Date: 20180711
  Serious: Yes (Other)
  Sender: FDA-Public Use
  Company Number: AT-DSJP-DSE-2018-115750

PATIENT

DRUGS (5)
  1. THROMBO ASS [Concomitant]
     Active Substance: ASPIRIN
     Indication: DRESSLER^S SYNDROME
     Dates: start: 2014
  2. CRESTOR [Concomitant]
     Active Substance: ROSUVASTATIN CALCIUM
     Indication: DRESSLER^S SYNDROME
     Dates: start: 2014
  3. BISOPROLOL [Concomitant]
     Active Substance: BISOPROLOL
     Indication: DRESSLER^S SYNDROME
     Dosage: 2.5 MG, QD
     Dates: start: 201403
  4. MENCORD [Suspect]
     Active Substance: OLMESARTAN MEDOXOMIL
     Indication: HYPERTENSION
     Dosage: 20 MG, QD
     Dates: start: 2016, end: 201804
  5. EZETROL [Concomitant]
     Active Substance: EZETIMIBE
     Indication: DRESSLER^S SYNDROME
     Dosage: 10 MG, QD
     Dates: start: 201612

REACTIONS (2)
  - Muscle spasms [Unknown]
  - Diarrhoea [Unknown]
